FAERS Safety Report 6791224-7 (Version None)
Quarter: 2010Q2

REPORT INFORMATION
  Report Type: 
  Country: None (occurrence: None)
  Receive Date: 20100624
  Receipt Date: 20100608
  Transmission Date: 20101027
  Serious: Yes (Hospitalization, Other)
  Sender: FDA-Public Use
  Company Number: PHEH2006US04718

PATIENT
  Sex: Female
  Weight: 81.632 kg

DRUGS (73)
  1. AREDIA [Suspect]
     Indication: BONE CANCER METASTATIC
     Dosage: UNK, QMO
     Dates: start: 20020221, end: 20051201
  2. ZOMETA [Suspect]
     Indication: METASTASES TO BONE
     Dosage: UNK, QMO
     Dates: start: 20030101
  3. FEMARA [Suspect]
     Indication: BREAST CANCER
     Dosage: UNK
     Dates: start: 20020201
  4. SYNTHROID [Concomitant]
     Dosage: 0.112 MG, UNK
  5. CELEBREX [Concomitant]
     Dosage: 200 MG, BID
  6. NASONEX [Concomitant]
  7. VITAMIN E [Concomitant]
     Dosage: 1000 IU, QD
     Route: 048
  8. VITAMIN C [Concomitant]
  9. SELENIUM [Concomitant]
  10. CLARINEX /USA/ [Concomitant]
  11. THERATOPE [Concomitant]
     Dosage: UNK
  12. LEXAPRO [Concomitant]
  13. WELLBUTRIN [Concomitant]
  14. CLARITIN [Concomitant]
  15. CIPROFLOXACIN [Concomitant]
  16. CEPHALEXIN [Concomitant]
  17. METHYLPREDNISOLONE [Concomitant]
  18. LEVAQUIN [Concomitant]
  19. HYDROCODONE [Concomitant]
  20. CHLORHEXIDINE [Concomitant]
  21. PERIOGARD [Concomitant]
  22. FLUCONAZOLE [Concomitant]
  23. MOBIC [Concomitant]
     Dosage: UNK
  24. ULTRAM [Concomitant]
  25. PENICILLIN VK [Concomitant]
  26. CYCLOBENZAPRINE [Concomitant]
  27. CHANTIX [Concomitant]
  28. AMOXICILLIN [Concomitant]
  29. PROTONIX [Concomitant]
  30. RADIATION [Concomitant]
  31. LEVSIN [Concomitant]
  32. TYLENOL [Concomitant]
  33. LORATADINE [Concomitant]
  34. HYDROCODONE BITARTRATE AND ACETAMINOPHEN [Concomitant]
  35. XANAX [Concomitant]
  36. REGLAN [Concomitant]
  37. OXYCONTIN [Concomitant]
  38. PERIDEX [Concomitant]
     Dosage: UNK
  39. VITAMIN D [Concomitant]
  40. LOVAZA [Concomitant]
  41. VITAMIN B COMPLEX CAP [Concomitant]
  42. CALCIUM CITRATE [Concomitant]
  43. FENTANYL [Concomitant]
  44. FLONASE [Concomitant]
     Dosage: UNK
  45. MULTI-VITAMINS [Concomitant]
  46. CELEXA [Concomitant]
  47. CLEOCIN [Concomitant]
  48. VICODIN [Concomitant]
  49. COQ10 [Concomitant]
  50. ALLEGRA [Concomitant]
  51. AMBIEN [Concomitant]
  52. MOXIFLOXACIN [Concomitant]
  53. BICITRA                            /00586801/ [Concomitant]
  54. SOLU-MEDROL [Concomitant]
  55. HABITROL [Concomitant]
  56. CYMBALTA [Concomitant]
  57. LUNESTA [Concomitant]
  58. METOPROLOL [Concomitant]
     Dosage: 50 MG, BID
  59. CLINDAMYCIN [Concomitant]
     Indication: OSTEOMYELITIS
     Dosage: 900MG, EVERY Q 8HR
     Route: 042
  60. CEFTAZIDIME [Concomitant]
     Indication: OSTEOMYELITIS
     Dosage: 2 G, Q8 HR
     Route: 042
  61. HEPARIN [Concomitant]
     Indication: OSTEOMYELITIS
     Dosage: 100 UNITS/ML
     Route: 042
  62. SODIUM CHLORIDE [Concomitant]
     Indication: OSTEOMYELITIS
     Dosage: 0.9%,
  63. LODRANE [Concomitant]
  64. ZYRTEC [Concomitant]
  65. CALCIUM CARBONATE [Concomitant]
  66. COMPAZINE [Concomitant]
  67. DEXAMETHASONE [Concomitant]
  68. NORCO [Concomitant]
  69. OXYCODONE HCL [Concomitant]
  70. PROMETHAZINE [Concomitant]
  71. AMITRIPTYLINE HYDROCHLORIDE [Concomitant]
  72. TAXOTERE [Concomitant]
  73. MS CONTIN [Concomitant]

REACTIONS (99)
  - ADENOCARCINOMA [None]
  - ALANINE AMINOTRANSFERASE DECREASED [None]
  - ALOPECIA [None]
  - AMAUROSIS FUGAX [None]
  - ANXIETY [None]
  - AORTIC ARTERIOSCLEROSIS [None]
  - AORTIC CALCIFICATION [None]
  - ARTHRALGIA [None]
  - ASPARTATE AMINOTRANSFERASE DECREASED [None]
  - ATELECTASIS [None]
  - BLOOD GLUCOSE INCREASED [None]
  - BONE DENSITY DECREASED [None]
  - BONE DISORDER [None]
  - BONE MARROW NECROSIS [None]
  - BONE PAIN [None]
  - BREAST RECONSTRUCTION [None]
  - CANDIDIASIS [None]
  - CELLULITIS [None]
  - CENTRAL VENOUS CATHETERISATION [None]
  - CERVICAL SPINAL STENOSIS [None]
  - CERVICAL SPINE FLATTENING [None]
  - CONSTIPATION [None]
  - COUGH [None]
  - DEBRIDEMENT [None]
  - DECREASED APPETITE [None]
  - DEEP VEIN THROMBOSIS [None]
  - DENTURE WEARER [None]
  - DEPRESSION [None]
  - DEVICE FAILURE [None]
  - DEVICE RELATED SEPSIS [None]
  - DRY MOUTH [None]
  - DYSPNOEA EXERTIONAL [None]
  - EDENTULOUS [None]
  - EMOTIONAL DISTRESS [None]
  - ENDODONTIC PROCEDURE [None]
  - FALL [None]
  - FATIGUE [None]
  - FIBROSIS [None]
  - GASTROOESOPHAGEAL REFLUX DISEASE [None]
  - GINGIVAL RECESSION [None]
  - GINGIVAL SWELLING [None]
  - HAND-FOOT-AND-MOUTH DISEASE [None]
  - HEPATOMEGALY [None]
  - HYPERKALAEMIA [None]
  - HYPOAESTHESIA [None]
  - HYPONATRAEMIA [None]
  - INGROWN HAIR [None]
  - INJURY [None]
  - INSOMNIA [None]
  - INTERVERTEBRAL DISC DEGENERATION [None]
  - INTERVERTEBRAL DISC OPERATION [None]
  - INTERVERTEBRAL DISC PROTRUSION [None]
  - JOINT INJURY [None]
  - KERATOCONJUNCTIVITIS SICCA [None]
  - LACRIMATION INCREASED [None]
  - LOWER RESPIRATORY TRACT INFECTION [None]
  - LUNG CONSOLIDATION [None]
  - LUNG DISORDER [None]
  - LYMPHOEDEMA [None]
  - MALIGNANT NEOPLASM PROGRESSION [None]
  - MALIGNANT PLEURAL EFFUSION [None]
  - METASTASES TO BONE [None]
  - METASTASES TO CENTRAL NERVOUS SYSTEM [None]
  - METASTASES TO LUNG [None]
  - NASAL CONGESTION [None]
  - NAUSEA [None]
  - NECK PAIN [None]
  - OEDEMA PERIPHERAL [None]
  - ORAL NEOPLASM [None]
  - OSTEOARTHRITIS [None]
  - OSTEOMYELITIS [None]
  - OSTEONECROSIS OF JAW [None]
  - OSTEOSCLEROSIS [None]
  - PAIN [None]
  - PATHOLOGICAL FRACTURE [None]
  - PERICARDIAL EFFUSION [None]
  - PERIODONTITIS [None]
  - PLATELET COUNT INCREASED [None]
  - PLEURODESIS [None]
  - PNEUMOTHORAX [None]
  - PROTEIN TOTAL INCREASED [None]
  - PULMONARY FIBROSIS [None]
  - PYREXIA [None]
  - RADICULOPATHY [None]
  - RADIOTHERAPY [None]
  - RED BLOOD CELL COUNT DECREASED [None]
  - SCOLIOSIS [None]
  - SEQUESTRECTOMY [None]
  - SPINAL CORD COMPRESSION [None]
  - SPINAL OSTEOARTHRITIS [None]
  - SPUTUM PURULENT [None]
  - TENOSYNOVITIS STENOSANS [None]
  - THORACIC CAVITY DRAINAGE [None]
  - TOOTH ABSCESS [None]
  - TOOTH FRACTURE [None]
  - TOOTH LOSS [None]
  - TREMOR [None]
  - VENTRICULAR HYPERTROPHY [None]
  - VERTEBRAL FORAMINAL STENOSIS [None]
